FAERS Safety Report 9533671 (Version 3)
Quarter: 2013Q4

REPORT INFORMATION
  Report Type: Report from Study
  Country: US (occurrence: US)
  Receive Date: 20130918
  Receipt Date: 20131004
  Transmission Date: 20140711
  Serious: Yes (Disabling)
  Sender: FDA-Public Use
  Company Number: US-JNJFOC-20130515663

PATIENT
  Age: 79 Year
  Sex: Male
  Weight: 84.82 kg

DRUGS (30)
  1. ZYTIGA [Suspect]
     Indication: PROSTATE CANCER
     Route: 048
  2. ZYTIGA [Suspect]
     Indication: PROSTATE CANCER
     Route: 048
     Dates: start: 20130718
  3. ZYTIGA [Suspect]
     Indication: PROSTATE CANCER
     Route: 048
     Dates: start: 20130113
  4. ZYTIGA [Suspect]
     Indication: PROSTATE CANCER
     Route: 048
     Dates: start: 20120201
  5. ZYTIGA [Suspect]
     Indication: PROSTATE CANCER
     Route: 048
  6. ZYTIGA [Suspect]
     Indication: PROSTATE CANCER
     Route: 048
     Dates: end: 20130815
  7. PREDNISONE [Suspect]
     Indication: PROSTATE CANCER
     Route: 048
     Dates: start: 20130117
  8. METOPROLOL TARTRATE [Concomitant]
     Route: 048
  9. ASPIRIN [Concomitant]
     Route: 048
  10. ACCOLATE [Concomitant]
     Route: 048
  11. ACETAMINOPHEN [Concomitant]
     Route: 048
  12. ADVAIR DISKUS [Concomitant]
     Route: 055
  13. CALCIUM 600+D [Concomitant]
     Route: 048
  14. FERROUS SULPHATE [Concomitant]
     Route: 048
  15. FLUTICASONE PROPIONATE [Concomitant]
     Route: 055
  16. HYDROCHLOROTHIAZIDE [Concomitant]
     Route: 048
  17. NORCO [Concomitant]
     Route: 048
  18. PLAVIX [Concomitant]
     Route: 048
  19. SIMVASTATIN [Concomitant]
     Route: 048
  20. SINGULAIR [Concomitant]
     Route: 048
  21. VESICARE [Concomitant]
     Route: 048
  22. VITAMIN D [Concomitant]
     Route: 048
  23. XOPENEX [Concomitant]
     Route: 055
  24. ZOLPIDEM TARTRATE [Concomitant]
     Route: 048
  25. SENNA [Concomitant]
     Route: 048
     Dates: start: 20130815
  26. SYMBICORT [Concomitant]
     Route: 055
     Dates: start: 20130815
  27. LUPRON DEPOT [Concomitant]
     Route: 030
     Dates: start: 20111017, end: 20130718
  28. HYDROCODONE ACETAMINOPHEN [Concomitant]
     Dates: start: 20130605
  29. LEVALBUTEROL [Concomitant]
     Route: 055
  30. POLYETHYLENE GLYCOL 3350 [Concomitant]
     Route: 048

REACTIONS (7)
  - Dizziness [Recovering/Resolving]
  - Syncope [Recovering/Resolving]
  - Chest pain [Not Recovered/Not Resolved]
  - Palpitations [Recovering/Resolving]
  - Fatigue [Recovering/Resolving]
  - Infection [Recovered/Resolved]
  - Asthenia [Not Recovered/Not Resolved]
